FAERS Safety Report 22807292 (Version 14)
Quarter: 2025Q1

REPORT INFORMATION
  Report Type: Report from Study
  Country: US (occurrence: US)
  Receive Date: 20230810
  Receipt Date: 20250312
  Transmission Date: 20250409
  Serious: Yes (Hospitalization, Other)
  Sender: INSMED
  Company Number: US-INSMED, INC.-2023-02975-US

PATIENT
  Sex: Female

DRUGS (7)
  1. ARIKAYCE [Suspect]
     Active Substance: AMIKACIN
     Indication: Mycobacterium avium complex infection
     Dosage: 590 MILLIGRAM, QD
     Route: 055
     Dates: start: 20230724, end: 202308
  2. ARIKAYCE [Suspect]
     Active Substance: AMIKACIN
     Dosage: UNK UNK, BID
     Route: 055
     Dates: start: 202308, end: 2023
  3. ARIKAYCE [Suspect]
     Active Substance: AMIKACIN
     Dosage: 590 MILLIGRAM, QD
     Route: 055
     Dates: start: 2023, end: 2024
  4. ARIKAYCE [Suspect]
     Active Substance: AMIKACIN
     Dosage: 590 MILLIGRAM, QD
     Route: 055
     Dates: start: 2024, end: 2025
  5. ALBUTEROL [Suspect]
     Active Substance: ALBUTEROL
     Indication: Product used for unknown indication
     Route: 065
     Dates: end: 2023
  6. ETHAMBUTOL [Suspect]
     Active Substance: ETHAMBUTOL HYDROCHLORIDE
     Indication: Product used for unknown indication
     Route: 065
  7. BUSPAR [Concomitant]
     Active Substance: BUSPIRONE HYDROCHLORIDE
     Indication: Product used for unknown indication
     Route: 065

REACTIONS (26)
  - Aspergillus infection [Unknown]
  - Hospitalisation [Unknown]
  - Hospitalisation [Unknown]
  - Neoplasm malignant [Unknown]
  - Mycobacterium avium complex infection [Not Recovered/Not Resolved]
  - Condition aggravated [Unknown]
  - Lower respiratory tract congestion [Unknown]
  - Stress [Unknown]
  - Back disorder [Unknown]
  - Hernia [Unknown]
  - Abdominal pain [Unknown]
  - Anxiety [Unknown]
  - Headache [Unknown]
  - Oropharyngeal candidiasis [Unknown]
  - Cough [Not Recovered/Not Resolved]
  - Illness [Unknown]
  - Drug ineffective [Unknown]
  - Product dose omission issue [Unknown]
  - Off label use [Unknown]
  - Prescribed overdose [Unknown]
  - Off label use of device [Unknown]
  - Device issue [Unknown]
  - Device connection issue [Unknown]
  - Drug dose omission by device [Unknown]
  - Insurance issue [Unknown]
  - Therapy interrupted [Unknown]

NARRATIVE: CASE EVENT DATE: 20230101
